FAERS Safety Report 4439351-3 (Version None)
Quarter: 2004Q3

REPORT INFORMATION
  Report Type: 
  Country: None (occurrence: None)
  Receive Date: 20040728
  Receipt Date: 20040512
  Transmission Date: 20050211
  Serious: No
  Sender: FDA-Public Use
  Company Number: USA040465924

PATIENT
  Age: 37 Year
  Sex: Female
  Weight: 48 kg

DRUGS (3)
  1. STRATTERA [Suspect]
     Indication: ATTENTION DEFICIT/HYPERACTIVITY DISORDER
     Dosage: 25 MG
     Dates: start: 20040421
  2. PAXIL [Concomitant]
  3. NEURONTIN [Concomitant]

REACTIONS (3)
  - AGEUSIA [None]
  - DRUG INEFFECTIVE [None]
  - HYPOAESTHESIA [None]
